FAERS Safety Report 4550106-1 (Version None)
Quarter: 2005Q1

REPORT INFORMATION
  Report Type: 
  Country: None (occurrence: None)
  Receive Date: 20050110
  Receipt Date: 20041229
  Transmission Date: 20050727
  Serious: Yes (Other)
  Sender: FDA-Public Use
  Company Number: 2004121824

PATIENT
  Sex: Male
  Weight: 77.1115 kg

DRUGS (2)
  1. NEURONTIN [Suspect]
     Indication: RETINAL DETACHMENT
     Dosage: 600 MG (300 MG, 2 IN 1 D), ORAL
     Route: 048
     Dates: end: 20041201
  2. OXYBUTYNIN CHLORIDE [Concomitant]

REACTIONS (2)
  - LIMB IMMOBILISATION [None]
  - LIMB INJURY [None]
